FAERS Safety Report 13320860 (Version 2)
Quarter: 2017Q1

REPORT INFORMATION
  Report Type: Report from Study
  Country: US (occurrence: US)
  Receive Date: 20170309
  Receipt Date: 20170313
  Transmission Date: 20170428
  Serious: Yes (Hospitalization)
  Sender: FDA-Public Use
  Company Number: US-GILEAD-2017-0261147

PATIENT
  Age: 89 Year
  Sex: Female

DRUGS (11)
  1. VENTAVIS [Suspect]
     Active Substance: ILOPROST
     Indication: PRODUCT USED FOR UNKNOWN INDICATION
     Dosage: UNK
     Route: 065
  2. XARELTO [Concomitant]
     Active Substance: RIVAROXABAN
  3. PRAVASTATIN. [Concomitant]
     Active Substance: PRAVASTATIN
  4. SYNTHROID [Concomitant]
     Active Substance: LEVOTHYROXINE SODIUM
  5. PLAVIX [Concomitant]
     Active Substance: CLOPIDOGREL BISULFATE
  6. AMBRISENTAN [Suspect]
     Active Substance: AMBRISENTAN
     Indication: PULMONARY HYPERTENSION
     Dosage: 10 MG, QD
     Route: 065
     Dates: start: 20131226
  7. ALLOPURINOL. [Concomitant]
     Active Substance: ALLOPURINOL
  8. PROTONIX                           /00661201/ [Concomitant]
     Active Substance: OMEPRAZOLE
  9. ASPIRIN                            /00002701/ [Concomitant]
     Active Substance: ASPIRIN
  10. COREG [Concomitant]
     Active Substance: CARVEDILOL
  11. ALDACTONE [Concomitant]
     Active Substance: SPIRONOLACTONE

REACTIONS (3)
  - Dyspnoea [Recovered/Resolved]
  - Chest pain [Recovered/Resolved]
  - Headache [Recovered/Resolved]

NARRATIVE: CASE EVENT DATE: 20170223
